FAERS Safety Report 7957255-6 (Version None)
Quarter: 2011Q4

REPORT INFORMATION
  Report Type: 
  Country: None (occurrence: None)
  Receive Date: 20111205
  Receipt Date: 20111202
  Transmission Date: 20120403
  Serious: Yes (Hospitalization)
  Sender: FDA-Public Use
  Company Number: IT-SANOFI-AVENTIS-2011SA076210

PATIENT
  Age: 28 Year
  Sex: Female

DRUGS (2)
  1. ASPIRIN [Suspect]
     Indication: SUICIDE ATTEMPT
     Route: 048
     Dates: start: 20111031, end: 20111031
  2. ZOLPIDEM [Suspect]
     Indication: SUICIDE ATTEMPT
     Route: 048
     Dates: start: 20111031, end: 20111031

REACTIONS (2)
  - SOPOR [None]
  - MYDRIASIS [None]
